FAERS Safety Report 21930343 (Version 3)
Quarter: 2023Q2

REPORT INFORMATION
  Report Type: Report from Study
  Country: US (occurrence: US)
  Receive Date: 20230131
  Receipt Date: 20230412
  Transmission Date: 20230722
  Serious: No
  Sender: FDA-Public Use
  Company Number: US-002147023-NVSC2023US021029

PATIENT
  Age: 58 Year
  Sex: Female
  Weight: 54.4 kg

DRUGS (4)
  1. COSENTYX [Suspect]
     Active Substance: SECUKINUMAB
     Indication: Psoriatic arthropathy
     Dosage: 300 MG, QMO
     Route: 058
     Dates: start: 20180108
  2. COSENTYX [Suspect]
     Active Substance: SECUKINUMAB
     Dosage: UNK
     Route: 065
     Dates: start: 20230105
  3. METHOTREXATE [Suspect]
     Active Substance: METHOTREXATE
     Indication: Product used for unknown indication
     Dosage: 8 DOSAGE FORM, QW
     Route: 048
  4. METHOTREXATE [Suspect]
     Active Substance: METHOTREXATE
     Dosage: UNK
     Route: 065
     Dates: start: 20230105

REACTIONS (19)
  - COVID-19 [Recovered/Resolved]
  - Dyspnoea [Recovering/Resolving]
  - Pyrexia [Recovering/Resolving]
  - Cough [Recovering/Resolving]
  - Oropharyngeal pain [Recovering/Resolving]
  - Fatigue [Recovered/Resolved]
  - Headache [Recovered/Resolved]
  - Nausea [Recovered/Resolved]
  - Brain fog [Recovered/Resolved]
  - Myalgia [Recovering/Resolving]
  - Vomiting [Recovering/Resolving]
  - Anosmia [Recovering/Resolving]
  - Ageusia [Recovering/Resolving]
  - Trigger finger [Unknown]
  - Peripheral coldness [Unknown]
  - Peripheral swelling [Unknown]
  - Pain in extremity [Unknown]
  - Red blood cell sedimentation rate increased [Unknown]
  - Memory impairment [Recovered/Resolved]

NARRATIVE: CASE EVENT DATE: 20221230
